FAERS Safety Report 5389677-4 (Version None)
Quarter: 2007Q3

REPORT INFORMATION
  Report Type: 
  Country: None (occurrence: None)
  Receive Date: 20070713
  Receipt Date: 20070628
  Transmission Date: 20080115
  Serious: Yes (Death, Hospitalization)
  Sender: FDA-Public Use
  Company Number: 2007S1006359

PATIENT
  Age: 24 Year
  Sex: Male

DRUGS (2)
  1. CYSTAGON [Suspect]
     Indication: CYSTINOSIS
     Dosage: SEE IMAGE
     Route: 048
     Dates: end: 20030401
  2. CYSTAGON [Suspect]
     Indication: CYSTINOSIS
     Dosage: SEE IMAGE
     Route: 048
     Dates: start: 20000108

REACTIONS (1)
  - PNEUMONIA [None]
